FAERS Safety Report 4832574-0 (Version None)
Quarter: 2005Q4

REPORT INFORMATION
  Report Type: 
  Country: None (occurrence: None)
  Receive Date: 20051117
  Receipt Date: 20051105
  Transmission Date: 20060501
  Serious: Yes (Other)
  Sender: FDA-Public Use
  Company Number: 2005070565

PATIENT
  Age: 56 Year
  Sex: Female
  Weight: 80.7403 kg

DRUGS (8)
  1. NEOSPORIN [Suspect]
     Indication: SKIN LACERATION
     Dosage: SMALL AMOUNT ONCE, TOPICAL
     Route: 061
     Dates: start: 20050313, end: 20050313
  2. NEOSPORIN [Suspect]
     Indication: PRURITUS
     Dosage: TOPICAL
     Route: 061
     Dates: start: 20050313
  3. DRUG (DRUG,) [Suspect]
     Indication: PRURITUS
     Dosage: TOPICAL
     Route: 061
  4. CORTICOSTEROID NOS (CORTICOSTEROID NOS) [Suspect]
     Indication: RASH
     Dosage: ,ONCE, PARENTERAL
     Route: 051
     Dates: start: 20050314, end: 20050314
  5. PREDNISONE [Suspect]
     Indication: RASH
     Dosage: 2 TABLETS DAILY, ORAL
     Route: 048
     Dates: start: 20050315
  6. FLUOCINONIDE [Suspect]
     Indication: RASH
     Dosage: 0.5% DAILY, PRN, TOPICAL
     Route: 061
     Dates: start: 20050315
  7. DRUG (DRUG,) [Suspect]
     Indication: NASOPHARYNGITIS
  8. HYDROGEN PEROXIDE (HYDROGEN PEROXIDE) [Suspect]
     Dosage: ONCE, TOPICAL
     Route: 061

REACTIONS (7)
  - BRONCHITIS ACUTE [None]
  - DRUG HYPERSENSITIVITY [None]
  - NASOPHARYNGITIS [None]
  - PLEURISY [None]
  - RASH ERYTHEMATOUS [None]
  - RASH PRURITIC [None]
  - RESPIRATORY TRACT INFECTION [None]
